FAERS Safety Report 21129724 (Version 2)
Quarter: 2022Q3

REPORT INFORMATION
  Report Type: Spontaneous
  Country: JP (occurrence: JP)
  Receive Date: 20220726
  Receipt Date: 20220801
  Transmission Date: 20221026
  Serious: Yes (Other)
  Sender: FDA-Public Use
  Company Number: ALC2022JP003436

PATIENT
  Sex: Female

DRUGS (2)
  1. AZOPT [Suspect]
     Active Substance: BRINZOLAMIDE
     Indication: Product used for unknown indication
     Dosage: UNK
     Route: 047
  2. BRINZOLAMIDE [Suspect]
     Active Substance: BRINZOLAMIDE
     Indication: Product used for unknown indication
     Dosage: UNK
     Route: 047
     Dates: start: 20220711

REACTIONS (7)
  - Conjunctival haemorrhage [Unknown]
  - Foreign body sensation in eyes [Unknown]
  - Periorbital swelling [Unknown]
  - Rash [Unknown]
  - Eye irritation [Unknown]
  - Photopsia [Unknown]
  - Eye pain [Unknown]

NARRATIVE: CASE EVENT DATE: 20220711
